FAERS Safety Report 11801678 (Version 1)
Quarter: 2015Q4

REPORT INFORMATION
  Report Type: Spontaneous
  Country: US (occurrence: US)
  Receive Date: 20151204
  Receipt Date: 20151204
  Transmission Date: 20160305
  Serious: No
  Sender: FDA-Public Use
  Company Number: US-JNJFOC-20151105149

PATIENT
  Age: 86 Year
  Sex: Female

DRUGS (2)
  1. NIZORAL A-D [Suspect]
     Active Substance: KETOCONAZOLE
     Indication: SKIN EXFOLIATION
     Dosage: NICKEL SIZE (MONDAY WEDNESDAY FRIDAY)
     Route: 061
     Dates: start: 20151021
  2. NIZORAL A-D [Suspect]
     Active Substance: KETOCONAZOLE
     Indication: PRURITUS
     Dosage: NICKEL SIZE (MONDAY WEDNESDAY FRIDAY)
     Route: 061
     Dates: start: 20151021

REACTIONS (2)
  - Inappropriate schedule of drug administration [Unknown]
  - Off label use [Unknown]
